FAERS Safety Report 5171148-1 (Version None)
Quarter: 2006Q4

REPORT INFORMATION
  Report Type: 
  Country: None (occurrence: None)
  Receive Date: 20061213
  Receipt Date: 20061122
  Transmission Date: 20070319
  Serious: Yes (Death, Hospitalization)
  Sender: FDA-Public Use
  Company Number: GB-BRISTOL-MYERS SQUIBB COMPANY-13587464

PATIENT
  Age: 56 Year
  Sex: Male
  Weight: 82 kg

DRUGS (12)
  1. CISPLATIN [Suspect]
     Indication: NON-SMALL CELL LUNG CANCER
     Route: 042
     Dates: start: 20061003, end: 20061003
  2. PF-3512676 [Suspect]
     Indication: NON-SMALL CELL LUNG CANCER
     Route: 058
     Dates: start: 20061031, end: 20061031
  3. GEMCITABINE [Suspect]
     Indication: NON-SMALL CELL LUNG CANCER
     Route: 042
     Dates: start: 20061010, end: 20061010
  4. DALTEPARIN SODIUM [Concomitant]
     Route: 058
     Dates: start: 20060711
  5. METOCLOPRAMIDE [Concomitant]
     Route: 048
     Dates: start: 20060704
  6. DIHYDROCODEINE BITARTRATE INJ [Concomitant]
     Route: 048
     Dates: start: 20060714
  7. NOZINAN [Concomitant]
     Route: 048
     Dates: start: 20060912
  8. ACETAMINOPHEN [Concomitant]
     Route: 048
     Dates: start: 20060501
  9. LANSOPRAZOLE [Concomitant]
     Route: 048
     Dates: start: 20060501
  10. CYCLIZINE [Concomitant]
     Route: 048
     Dates: end: 20061027
  11. LAXOBERAL [Concomitant]
     Route: 048
     Dates: end: 20061025
  12. MEGACE [Concomitant]
     Route: 048
     Dates: end: 20061025

REACTIONS (3)
  - CEREBRAL HAEMORRHAGE [None]
  - LUNG CANCER METASTATIC [None]
  - MALIGNANT NEOPLASM PROGRESSION [None]
